FAERS Safety Report 12292407 (Version 1)
Quarter: 2016Q2

REPORT INFORMATION
  Report Type: Report from Study
  Country: US (occurrence: US)
  Receive Date: 20160421
  Receipt Date: 20160421
  Transmission Date: 20160815
  Serious: No
  Sender: FDA-Public Use
  Company Number: US-AMGEN-USASL2016013024

PATIENT
  Age: 46 Year
  Sex: Male

DRUGS (1)
  1. REPATHA [Suspect]
     Active Substance: EVOLOCUMAB
     Indication: HYPERLIPIDAEMIA
     Dosage: 140 MG, Q2WK
     Route: 065

REACTIONS (9)
  - Rhinorrhoea [Unknown]
  - Hyperhidrosis [Unknown]
  - Back pain [Unknown]
  - Musculoskeletal stiffness [Unknown]
  - Influenza like illness [Unknown]
  - Fatigue [Unknown]
  - Diarrhoea [Unknown]
  - Pain [Unknown]
  - Vomiting [Unknown]

NARRATIVE: CASE EVENT DATE: 2016
